FAERS Safety Report 8977117 (Version 3)
Quarter: 2013Q1

REPORT INFORMATION
  Report Type: Spontaneous
  Country: US (occurrence: US)
  Receive Date: 20121220
  Receipt Date: 20130108
  Transmission Date: 20140127
  Serious: Yes (Hospitalization)
  Sender: FDA-Public Use
  Company Number: US-BIOGENIDEC-2012BI061188

PATIENT
  Age: 38 Year
  Sex: Female

DRUGS (3)
  1. TYSABRI [Suspect]
     Indication: MULTIPLE SCLEROSIS
     Route: 042
     Dates: start: 20080915, end: 20081114
  2. TYSABRI [Suspect]
     Indication: MULTIPLE SCLEROSIS
     Route: 042
     Dates: start: 20090512, end: 20100908
  3. TYSABRI [Suspect]
     Indication: MULTIPLE SCLEROSIS
     Route: 042
     Dates: start: 20110923, end: 20121217

REACTIONS (9)
  - Drug specific antibody present [Unknown]
  - Visual impairment [Recovered/Resolved]
  - Headache [Recovered/Resolved]
  - Hearing impaired [Recovered/Resolved]
  - Decubitus ulcer [Recovered/Resolved]
  - Renal disorder [Recovered/Resolved]
  - Escherichia test positive [Recovered/Resolved]
  - Dysgraphia [Not Recovered/Not Resolved]
  - Blindness [Not Recovered/Not Resolved]
